FAERS Safety Report 9482281 (Version 4)
Quarter: 2013Q4

REPORT INFORMATION
  Report Type: Report from Study
  Country: CA (occurrence: CA)
  Receive Date: 20130828
  Receipt Date: 20131119
  Transmission Date: 20140711
  Serious: Yes (Other)
  Sender: FDA-Public Use
  Company Number: CA-JNJFOC-20130809704

PATIENT
  Sex: Female

DRUGS (1)
  1. SIMPONI [Suspect]
     Indication: PSORIATIC ARTHROPATHY
     Route: 058
     Dates: start: 20130615, end: 20130715

REACTIONS (6)
  - Surgery [Unknown]
  - Cystitis [Unknown]
  - Diabetes mellitus [Unknown]
  - Arthritis [Unknown]
  - Hypotension [Unknown]
  - Localised infection [Unknown]
